FAERS Safety Report 10714141 (Version 2)
Quarter: 2015Q1

REPORT INFORMATION
  Report Type: Spontaneous
  Country: BR (occurrence: BR)
  Receive Date: 20150115
  Receipt Date: 20150116
  Transmission Date: 20150721
  Serious: Yes (Other)
  Sender: FDA-Public Use
  Company Number: BR-PFIZER INC-2015013171

PATIENT
  Age: 74 Year
  Sex: Female
  Weight: 57 kg

DRUGS (6)
  1. OMEPRAZOLE. [Concomitant]
     Active Substance: OMEPRAZOLE
     Indication: ULCER
  2. OMEPRAZOLE. [Concomitant]
     Active Substance: OMEPRAZOLE
     Indication: GASTRITIS
     Dosage: 1 TABLET, 2X/DAY
     Dates: start: 2011
  3. FRONTAL [Suspect]
     Active Substance: ALPRAZOLAM
     Indication: INSOMNIA
     Dosage: 1 TABLET AT NIGHT
     Route: 048
     Dates: start: 2008
  4. SIMVASTATIN. [Concomitant]
     Active Substance: SIMVASTATIN
     Indication: BLOOD CHOLESTEROL INCREASED
     Dosage: 1 TABLET AT NIGHT
     Dates: start: 2012
  5. BETADINE [Concomitant]
     Active Substance: POVIDONE-IODINE
     Indication: DIZZINESS
     Dosage: 1 TABLET, UNSPECIFIED FREQUECY
     Dates: start: 201407
  6. DIOSMIN [Concomitant]
     Active Substance: DIOSMIN
     Indication: PAIN IN EXTREMITY
     Dosage: 2 TABLET, DAILY
     Dates: start: 2012

REACTIONS (2)
  - Cerebrovascular accident [Unknown]
  - Drug ineffective [Unknown]
